FAERS Safety Report 4830003-4 (Version None)
Quarter: 2005Q4

REPORT INFORMATION
  Report Type: 
  Country: None (occurrence: None)
  Receive Date: 20051114
  Receipt Date: 20051101
  Transmission Date: 20060501
  Serious: Yes (Life-Threatening)
  Sender: FDA-Public Use
  Company Number: 2005149522

PATIENT
  Age: 65 Year
  Sex: Female

DRUGS (3)
  1. ZITHROMAX [Suspect]
     Indication: PNEUMONIA
     Dosage: 500 MG (500 MG, QD), INTRAVENOUS
     Route: 042
     Dates: start: 20051030, end: 20051031
  2. THYROID TAB [Concomitant]
  3. CEFTAZIDIME SODIUM [Concomitant]

REACTIONS (6)
  - CARDIAC ARREST [None]
  - CYANOSIS [None]
  - DEPRESSED LEVEL OF CONSCIOUSNESS [None]
  - DYSPNOEA [None]
  - ELECTROCARDIOGRAM T WAVE INVERSION [None]
  - WRONG TECHNIQUE IN DRUG USAGE PROCESS [None]
